FAERS Safety Report 13138131 (Version 1)
Quarter: 2017Q1

REPORT INFORMATION
  Report Type: Spontaneous
  Country: US (occurrence: US)
  Receive Date: 20170123
  Receipt Date: 20170123
  Transmission Date: 20170428
  Serious: No
  Sender: FDA-Public Use
  Company Number: US-UNITED THERAPEUTICS-UNT-2016-010614

PATIENT
  Age: 71 Year
  Sex: Female
  Weight: 55.78 kg

DRUGS (3)
  1. LETAIRIS [Concomitant]
     Active Substance: AMBRISENTAN
     Indication: PRODUCT USED FOR UNKNOWN INDICATION
  2. ADCIRCA [Concomitant]
     Active Substance: TADALAFIL
     Indication: PRODUCT USED FOR UNKNOWN INDICATION
  3. REMODULIN [Suspect]
     Active Substance: TREPROSTINIL
     Indication: PULMONARY ARTERIAL HYPERTENSION
     Dosage: 0.046 ?G/KG, CONTINUING
     Route: 041
     Dates: start: 20160513

REACTIONS (6)
  - Diarrhoea [Unknown]
  - Injection site rash [Unknown]
  - Headache [Unknown]
  - Dermatitis contact [Recovering/Resolving]
  - Injection site erythema [Unknown]
  - Pain in jaw [Unknown]

NARRATIVE: CASE EVENT DATE: 201606
